FAERS Safety Report 8852807 (Version 3)
Quarter: 2013Q1

REPORT INFORMATION
  Report Type: Report from Study
  Country: JP (occurrence: JP)
  Receive Date: 20121022
  Receipt Date: 20130320
  Transmission Date: 20140127
  Serious: Yes (Hospitalization, Other)
  Sender: FDA-Public Use
  Company Number: JP-BAXTER-2012BAX020608

PATIENT
  Age: 62 Year
  Sex: Male
  Weight: 52.3 kg

DRUGS (29)
  1. ENDOXAN [Suspect]
     Indication: B-CELL LYMPHOMA
     Route: 042
     Dates: start: 20120516
  2. DOXORUBICIN [Suspect]
     Indication: B-CELL LYMPHOMA
     Route: 042
     Dates: start: 20120516
  3. VINCRISTINE [Suspect]
     Indication: B-CELL LYMPHOMA
     Route: 042
     Dates: start: 20120516
  4. PREDNISONE [Suspect]
     Indication: B-CELL LYMPHOMA
     Route: 065
     Dates: start: 20120516
  5. PREDNISONE [Suspect]
     Route: 065
     Dates: start: 20120520
  6. RITUXIMAB [Suspect]
     Indication: B-CELL LYMPHOMA
     Route: 042
     Dates: start: 20120516
  7. MARZULENE S [Concomitant]
     Indication: GASTRIC ULCER
     Route: 065
     Dates: start: 20120425, end: 20120530
  8. MARZULENE S [Concomitant]
     Dates: start: 20120601, end: 20120821
  9. L-GLUTAMINE [Concomitant]
     Indication: GASTRIC ULCER
     Route: 065
     Dates: start: 20120530
  10. L-GLUTAMINE [Concomitant]
     Route: 065
     Dates: start: 20120601, end: 20120821
  11. SUCRALFATE [Concomitant]
     Indication: ABDOMINAL PAIN UPPER
     Route: 065
     Dates: start: 20120530
  12. SUCRALFATE [Concomitant]
     Indication: GASTRITIS
     Route: 065
     Dates: start: 20120601, end: 20120821
  13. SUCRALFATE [Concomitant]
     Route: 065
     Dates: start: 20120424, end: 20120821
  14. ETIZOLAM [Concomitant]
     Indication: ANXIETY
     Route: 065
     Dates: end: 20120530
  15. ETIZOLAM [Concomitant]
     Indication: INSOMNIA
     Route: 065
     Dates: start: 20120601
  16. ALLOPURINOL [Concomitant]
     Indication: HYPERURICAEMIA
     Route: 065
     Dates: start: 20120301, end: 20120530
  17. ALLOPURINOL [Concomitant]
     Route: 065
     Dates: start: 20120601, end: 20120914
  18. AMLODIPINE BESILATE [Concomitant]
     Indication: HYPERTENSION
     Route: 065
     Dates: start: 20120509, end: 20120530
  19. AMLODIPINE BESILATE [Concomitant]
     Route: 065
     Dates: start: 20120602
  20. SULFAMETHOXAZOLE [Concomitant]
     Indication: PRODUCT USED FOR UNKNOWN INDICATION
     Route: 065
     Dates: start: 20120515, end: 20120530
  21. SULFAMETHOXAZOLE [Concomitant]
     Route: 065
     Dates: start: 20120602
  22. CEFEPIME HYDROCHLORIDE [Concomitant]
     Indication: FEBRILE NEUTROPENIA
     Route: 065
     Dates: start: 20120525, end: 20120528
  23. MEROPENEM [Concomitant]
     Indication: FEBRILE NEUTROPENIA
     Route: 065
     Dates: start: 20120528, end: 20120604
  24. MAGNESIUM OXIDE [Concomitant]
     Indication: CONSTIPATION
     Route: 065
     Dates: start: 20120525, end: 20120529
  25. MAGNESIUM OXIDE [Concomitant]
     Route: 065
     Dates: start: 20120602, end: 20120718
  26. SENNOSIDES [Concomitant]
     Indication: CONSTIPATION PROPHYLAXIS
     Route: 065
     Dates: start: 20120525
  27. NEW LECICARBON [Concomitant]
     Indication: CONSTIPATION
     Route: 065
     Dates: start: 20120527, end: 20120527
  28. LANSOPRAZOLE [Concomitant]
     Indication: GASTRIC ULCER
     Route: 065
     Dates: start: 201203
  29. METOCLOPRAMIDE [Concomitant]
     Indication: HICCUPS
     Route: 065
     Dates: start: 20120517, end: 20120629

REACTIONS (1)
  - Gastric haemorrhage [None]
